FAERS Safety Report 13397235 (Version 1)
Quarter: 2017Q2

REPORT INFORMATION
  Report Type: Spontaneous
  Country: PL (occurrence: PL)
  Receive Date: 20170403
  Receipt Date: 20170403
  Transmission Date: 20170830
  Serious: Yes (Other)
  Sender: FDA-Public Use
  Company Number: PL-BAYER-2017-055253

PATIENT
  Age: 69 Year

DRUGS (2)
  1. NEXAVAR [Suspect]
     Active Substance: SORAFENIB
     Indication: CLEAR CELL RENAL CELL CARCINOMA
     Dosage: UNK
     Route: 048
     Dates: start: 200909
  2. NEXAVAR [Suspect]
     Active Substance: SORAFENIB
     Indication: CLEAR CELL RENAL CELL CARCINOMA
     Dosage: UNK
     Dates: start: 201405

REACTIONS (3)
  - Metastases to liver [None]
  - Clear cell renal cell carcinoma [None]
  - Metastases to pancreas [None]
